FAERS Safety Report 8934176 (Version 1)
Quarter: 2012Q4

REPORT INFORMATION
  Report Type: 
  Country: US (occurrence: US)
  Receive Date: 20121129
  Receipt Date: 20121129
  Transmission Date: 20130627
  Serious: No
  Sender: FDA-Public Use
  Company Number: US-GLAXOSMITHKLINE-A0989021A

PATIENT

DRUGS (1)
  1. BUPROPION [Suspect]
     Indication: ANTIDEPRESSANT THERAPY
     Dosage: 150MG See dosage text
     Route: 065

REACTIONS (3)
  - Nicotine dependence [Unknown]
  - Mental disorder [Unknown]
  - Drug ineffective [Unknown]
